FAERS Safety Report 10337213 (Version 1)
Quarter: 2014Q3

REPORT INFORMATION
  Report Type: Spontaneous
  Country: US (occurrence: US)
  Receive Date: 20140723
  Receipt Date: 20140723
  Transmission Date: 20150326
  Serious: No
  Sender: FDA-Public Use
  Company Number: US-PFIZER INC-2014202796

PATIENT
  Age: 54 Year
  Sex: Female
  Weight: 88.44 kg

DRUGS (2)
  1. ATENOLOL. [Concomitant]
     Active Substance: ATENOLOL
     Indication: HYPERTENSION
     Dosage: 0.25MG ONCE A DAY
     Route: 048
  2. ADVIL PM [Suspect]
     Active Substance: DIPHENHYDRAMINE CITRATE\IBUPROFEN
     Indication: INSOMNIA
     Dosage: TWO TABLETS, ONCE AT NIGHT
     Route: 048
     Dates: start: 20140712, end: 20140712

REACTIONS (3)
  - Sleep-related eating disorder [Recovered/Resolved]
  - Abnormal sleep-related event [Recovered/Resolved]
  - Somnambulism [Recovered/Resolved]

NARRATIVE: CASE EVENT DATE: 20140712
